FAERS Safety Report 21668976 (Version 1)
Quarter: 2022Q4

REPORT INFORMATION
  Report Type: Spontaneous
  Country: US (occurrence: None)
  Receive Date: 20221130
  Receipt Date: 20221130
  Transmission Date: 20230113
  Serious: No
  Sender: FDA-Public Use
  Company Number: None

PATIENT
  Sex: Male

DRUGS (1)
  1. OTEZLA [Suspect]
     Active Substance: APREMILAST
     Indication: Psoriasis
     Dosage: ORAL ? ?TAKE BY MOUTH AS INSTRUCTED. DAY 1: 10MG IN AM, DAY 2: 10MG AM AND PM, DAY 3: 10MG AM AND 20
     Route: 048
     Dates: start: 202211

REACTIONS (1)
  - Drug ineffective [None]
